FAERS Safety Report 6226100-1 (Version None)
Quarter: 2009Q2

REPORT INFORMATION
  Report Type: 
  Country: None (occurrence: None)
  Receive Date: 20090612
  Receipt Date: 20090507
  Transmission Date: 20091009
  Serious: No
  Sender: FDA-Public Use
  Company Number: US-ABBOTT-09P-163-0572213-00

PATIENT
  Sex: Female
  Weight: 38.59 kg

DRUGS (3)
  1. HUMIRA [Suspect]
     Indication: CROHN'S DISEASE
     Route: 058
     Dates: start: 20081201
  2. PENTASA [Concomitant]
     Indication: CROHN'S DISEASE
     Dosage: UNSURE OF STRENGTH
     Route: 048
  3. ENTOCORT EC [Concomitant]
     Indication: CROHN'S DISEASE
     Dosage: UNSURE OF STRENGTH
     Route: 048

REACTIONS (1)
  - DRUG DOSE OMISSION [None]
